FAERS Safety Report 5504523-3 (Version None)
Quarter: 2007Q4

REPORT INFORMATION
  Report Type: 
  Country: None (occurrence: None)
  Receive Date: 20071031
  Receipt Date: 20071015
  Transmission Date: 20080405
  Serious: Yes (Other)
  Sender: FDA-Public Use
  Company Number: 2007S1010209

PATIENT
  Age: 75 Year
  Sex: Male

DRUGS (2)
  1. DOPADURA C (SINEMET) [Suspect]
     Indication: DRUG USE FOR UNKNOWN INDICATION
     Dosage: ; ORAL
     Route: 048
     Dates: start: 20071014
  2. ENTACAPONE [Suspect]
     Dosage: ; ORAL
     Route: 048
     Dates: start: 20071014

REACTIONS (3)
  - AGITATION [None]
  - CONFUSIONAL STATE [None]
  - DRUG ABUSER [None]
